FAERS Safety Report 8578539-7 (Version None)
Quarter: 2012Q3

REPORT INFORMATION
  Report Type: 
  Country: None (occurrence: None)
  Receive Date: 20120808
  Receipt Date: 20120726
  Transmission Date: 20120928
  Serious: No
  Sender: FDA-Public Use
  Company Number: US-ROXANE LABORATORIES, INC.-2012-RO-01606RO

PATIENT
  Sex: Male

DRUGS (4)
  1. FLOMAX [Concomitant]
  2. PERINDOPRIL ERBUMINE [Suspect]
     Indication: HYPERTENSION
     Dosage: 4 MG
     Route: 048
  3. PERINDOPRIL ERBUMINE [Suspect]
     Dosage: 2 MG
     Route: 048
  4. PLAVIX [Concomitant]

REACTIONS (2)
  - BLOOD PRESSURE FLUCTUATION [None]
  - PRODUCT QUALITY ISSUE [None]
